FAERS Safety Report 22132475 (Version 2)
Quarter: 2023Q1

REPORT INFORMATION
  Report Type: Spontaneous
  Country: CA (occurrence: CA)
  Receive Date: 20230323
  Receipt Date: 20230328
  Transmission Date: 20230417
  Serious: Yes (Life-Threatening, Hospitalization, Disabling, Other)
  Sender: FDA-Public Use
  Company Number: CA-BAUSCH-BL-2023-004839

PATIENT
  Age: 14 Year
  Sex: Female
  Weight: 44.038 kg

DRUGS (5)
  1. RIFAXIMIN [Suspect]
     Active Substance: RIFAXIMIN
     Indication: Gastrointestinal bacterial overgrowth
     Route: 048
  2. RIFAXIMIN [Suspect]
     Active Substance: RIFAXIMIN
     Indication: Constipation
     Route: 065
  3. DIANE (CYPROTERONE ACETATE\ETHINYL ESTRADIOL) [Concomitant]
     Active Substance: CYPROTERONE ACETATE\ETHINYL ESTRADIOL
     Indication: Product used for unknown indication
     Dosage: DIANE-35
  4. INTUNIV [Concomitant]
     Active Substance: GUANFACINE HYDROCHLORIDE
     Indication: Product used for unknown indication
     Dosage: INTUNIV XR  (TABLET EXTENDED-RELEASE)
  5. SERTRALINE [Concomitant]
     Active Substance: SERTRALINE HYDROCHLORIDE
     Indication: Product used for unknown indication

REACTIONS (43)
  - Dysstasia [Recovered/Resolved with Sequelae]
  - Feeding disorder [Recovered/Resolved with Sequelae]
  - Gastrooesophageal reflux disease [Recovered/Resolved with Sequelae]
  - Vitamin B1 increased [Recovered/Resolved with Sequelae]
  - Weight decreased [Unknown]
  - Platelet count increased [Unknown]
  - Lethargy [Recovered/Resolved with Sequelae]
  - Hypoaesthesia [Unknown]
  - Sensory disturbance [Unknown]
  - Red blood cell sedimentation rate increased [Unknown]
  - Blood thyroid stimulating hormone decreased [Unknown]
  - Haemoglobin decreased [Unknown]
  - Blood immunoglobulin E increased [Unknown]
  - Serum ferritin increased [Unknown]
  - Photophobia [Unknown]
  - Fine motor skill dysfunction [Unknown]
  - Bruxism [Unknown]
  - Coordination abnormal [Unknown]
  - Gamma-glutamyltransferase increased [Unknown]
  - Fungal infection [Unknown]
  - Hormone level abnormal [Unknown]
  - Haematocrit decreased [Unknown]
  - Weight gain poor [Unknown]
  - Back pain [Recovered/Resolved with Sequelae]
  - Asthenia [Recovered/Resolved with Sequelae]
  - Abdominal distension [Unknown]
  - Abdominal pain [Unknown]
  - Alanine aminotransferase decreased [Unknown]
  - Aspartate aminotransferase decreased [Unknown]
  - Pain in jaw [Unknown]
  - Decreased appetite [Unknown]
  - Pain in extremity [Unknown]
  - Dizziness [Unknown]
  - Dysphagia [Unknown]
  - Toothache [Unknown]
  - Eye pain [Unknown]
  - Nausea [Recovered/Resolved with Sequelae]
  - Abdominal pain upper [Recovered/Resolved with Sequelae]
  - Fatigue [Unknown]
  - Insomnia [Unknown]
  - Muscular weakness [Unknown]
  - Myalgia [Unknown]
  - Constipation [Unknown]
